FAERS Safety Report 20867343 (Version 4)
Quarter: 2022Q3

REPORT INFORMATION
  Report Type: Spontaneous
  Country: JP (occurrence: JP)
  Receive Date: 20220524
  Receipt Date: 20220720
  Transmission Date: 20221027
  Serious: Yes (Other)
  Sender: FDA-Public Use
  Company Number: JP-OTSUKA-2022_028237

PATIENT
  Age: 8 Year
  Sex: Male
  Weight: 25 kg

DRUGS (2)
  1. ABILIFY [Suspect]
     Active Substance: ARIPIPRAZOLE
     Indication: Autism spectrum disorder
     Dosage: 0.05 G, QD
     Route: 048
     Dates: start: 20210311, end: 20220523
  2. ABILIFY [Suspect]
     Active Substance: ARIPIPRAZOLE
     Indication: Irritability
     Dosage: 0.1G/DAY
     Route: 048

REACTIONS (2)
  - Gaze palsy [Not Recovered/Not Resolved]
  - Product use in unapproved indication [Unknown]

NARRATIVE: CASE EVENT DATE: 20220515
